FAERS Safety Report 5911035-1 (Version None)
Quarter: 2008Q4

REPORT INFORMATION
  Report Type: 
  Country: None (occurrence: None)
  Receive Date: 20081007
  Receipt Date: 20081001
  Transmission Date: 20090506
  Serious: Yes (Disabling)
  Sender: FDA-Public Use
  Company Number: US-ALLERGAN-0811505US

PATIENT
  Sex: Female

DRUGS (4)
  1. RESTASIS [Suspect]
     Indication: DRY EYE
     Dosage: 1 GTT, BID
     Route: 047
     Dates: start: 20080701
  2. OSTEOPOROSIS MEDICATIONS [Concomitant]
     Indication: OSTEOPOROSIS
  3. ZOCOR [Concomitant]
     Indication: BLOOD CHOLESTEROL
  4. ALLERGAM [Concomitant]
     Indication: HYPERSENSITIVITY

REACTIONS (2)
  - REFRACTION DISORDER [None]
  - VISION BLURRED [None]
